FAERS Safety Report 5465317-0 (Version None)
Quarter: 2007Q3

REPORT INFORMATION
  Report Type: 
  Country: None (occurrence: None)
  Receive Date: 20070920
  Receipt Date: 20070920
  Transmission Date: 20080115
  Serious: Yes (Hospitalization)
  Sender: FDA-Public Use
  Company Number: None

PATIENT
  Sex: Female
  Weight: 80 kg

DRUGS (3)
  1. CARBOPLATIN [Suspect]
     Dosage: 462 MG
  2. TAXOTERE [Suspect]
     Dosage: 144 MG
  3. TAXOL [Suspect]
     Dosage: 115 MG

REACTIONS (4)
  - ATELECTASIS [None]
  - CELLULITIS [None]
  - FEBRILE NEUTROPENIA [None]
  - INFUSION SITE ERYTHEMA [None]
